FAERS Safety Report 10025071 (Version 2)
Quarter: 2014Q2

REPORT INFORMATION
  Report Type: Spontaneous
  Country: US (occurrence: US)
  Receive Date: 20140320
  Receipt Date: 20140506
  Transmission Date: 20141212
  Serious: Yes (Hospitalization, Other)
  Sender: FDA-Public Use
  Company Number: US-ABBVIE-14P-163-1213352-00

PATIENT
  Sex: Male

DRUGS (1)
  1. CREON [Suspect]
     Indication: PRODUCT USED FOR UNKNOWN INDICATION

REACTIONS (7)
  - Pancreatitis [Not Recovered/Not Resolved]
  - Pneumonia [Unknown]
  - Pancreatitis [Unknown]
  - Vomiting [Unknown]
  - Melaena [Unknown]
  - Lipase increased [Unknown]
  - Amylase increased [Unknown]
